FAERS Safety Report 23066692 (Version 1)
Quarter: 2023Q4

REPORT INFORMATION
  Report Type: Spontaneous
  Country: US (occurrence: US)
  Receive Date: 20231016
  Receipt Date: 20231016
  Transmission Date: 20240110
  Serious: Yes (Other)
  Sender: FDA-Public Use
  Company Number: US-STERISCIENCE B.V.-2023-ST-001908

PATIENT
  Age: 51 Year
  Sex: Female

DRUGS (10)
  1. MYCOPHENOLATE MOFETIL [Suspect]
     Active Substance: MYCOPHENOLATE MOFETIL
     Indication: Subacute cutaneous lupus erythematosus
     Dosage: 3 GRAM, QD, MAXIMUM DOSE OF 3GM DAILY
     Route: 065
  2. HYDROXYCHLOROQUINE [Suspect]
     Active Substance: HYDROXYCHLOROQUINE
     Indication: Subacute cutaneous lupus erythematosus
     Dosage: 200 MILLIGRAM, BID, MAXIMUM DOSE OF 200MG TWICE DAILY
     Route: 065
  3. METHOTREXATE [Suspect]
     Active Substance: METHOTREXATE
     Indication: Subacute cutaneous lupus erythematosus
     Dosage: 22.5 MILLIGRAM, QW, MAXIMUM DOSE OF 22.5 MG/WEEK
     Route: 065
  4. TACROLIMUS [Suspect]
     Active Substance: TACROLIMUS
     Indication: Subacute cutaneous lupus erythematosus
     Dosage: INITIAL DOSE
     Route: 065
  5. TACROLIMUS [Suspect]
     Active Substance: TACROLIMUS
     Dosage: UNK
     Route: 065
  6. HYDROCHLOROTHIAZIDE [Concomitant]
     Active Substance: HYDROCHLOROTHIAZIDE
     Indication: Diuretic therapy
     Dosage: UNK
     Route: 065
  7. LISINOPRIL [Concomitant]
     Active Substance: LISINOPRIL
     Indication: Product used for unknown indication
     Dosage: UNK
     Route: 065
  8. METRONIDAZOLE [Concomitant]
     Active Substance: METRONIDAZOLE
     Indication: Subacute cutaneous lupus erythematosus
     Dosage: UNK
     Route: 065
  9. DOXYCYCLINE [Concomitant]
     Active Substance: DOXYCYCLINE
     Indication: Subacute cutaneous lupus erythematosus
     Dosage: UNK
     Route: 065
  10. DESONIDE [Concomitant]
     Active Substance: DESONIDE
     Indication: Subacute cutaneous lupus erythematosus
     Dosage: UNK
     Route: 065

REACTIONS (1)
  - Treatment failure [Unknown]
